FAERS Safety Report 5361282-5 (Version None)
Quarter: 2007Q2

REPORT INFORMATION
  Report Type: 
  Country: None (occurrence: None)
  Receive Date: 20070614
  Receipt Date: 20070529
  Transmission Date: 20071010
  Serious: Yes (Hospitalization)
  Sender: FDA-Public Use
  Company Number: GXKR2007GB04704

PATIENT
  Age: 63 Year
  Sex: Male

DRUGS (3)
  1. BENDROFLUMETHIAZIDE (NGX) (BNEDROFLUMETHIAZIDE) UNKNOWN [Suspect]
     Indication: HYPERTENSION
     Dosage: 2.5 MG, QD, ORAL
     Route: 048
  2. FLECAINIDE (NGX) (FLECAINIDE) UNKNOWN [Concomitant]
     Indication: PROPHYLAXIS
     Dosage: 100 MG, BID, ORAL
     Route: 048
  3. FELODIPINE [Concomitant]

REACTIONS (12)
  - CARDIOTOXICITY [None]
  - DISEASE RECURRENCE [None]
  - DRUG INTERACTION [None]
  - ELECTROCARDIOGRAM QRS COMPLEX PROLONGED [None]
  - ELECTROLYTE IMBALANCE [None]
  - FATIGUE [None]
  - HYPOKALAEMIA [None]
  - HYPONATRAEMIA [None]
  - LOSS OF CONSCIOUSNESS [None]
  - MUSCULAR WEAKNESS [None]
  - SYNCOPE [None]
  - VENTRICULAR TACHYCARDIA [None]
